FAERS Safety Report 8824712 (Version 2)
Quarter: 2012Q4

REPORT INFORMATION
  Report Type: 
  Country: SE (occurrence: SE)
  Receive Date: 20121004
  Receipt Date: 20121123
  Transmission Date: 20130627
  Serious: No
  Sender: FDA-Public Use
  Company Number: SE-UCBSA-067894

PATIENT
  Sex: Male

DRUGS (3)
  1. CIMZIA [Suspect]
     Indication: RHEUMATOID ARTHRITIS
     Dosage: 400 MG
     Route: 058
     Dates: start: 201206, end: 2012
  2. CIMZIA [Suspect]
     Indication: RHEUMATOID ARTHRITIS
     Dosage: 200 MG
     Route: 058
     Dates: start: 2012, end: 201209
  3. METHOTREXATE [Concomitant]
     Route: 048

REACTIONS (3)
  - Rash [Recovered/Resolved]
  - Dermatitis [Recovered/Resolved]
  - Drug effect decreased [Recovered/Resolved]
